FAERS Safety Report 9132614 (Version 3)
Quarter: 2013Q2

REPORT INFORMATION
  Report Type: Report from Study
  Country: DE (occurrence: DE)
  Receive Date: 20130301
  Receipt Date: 20130502
  Transmission Date: 20140414
  Serious: Yes (Hospitalization)
  Sender: FDA-Public Use
  Company Number: DE-ROCHE-1192599

PATIENT
  Age: 49 Year
  Sex: Female
  Weight: 78 kg

DRUGS (9)
  1. BEVACIZUMAB [Suspect]
     Indication: BREAST CANCER
     Dosage: DATE OF LAST DOSE PRIOR TO SAE: 11/FEB/2013
     Route: 065
     Dates: start: 20121210, end: 20130305
  2. CARBOPLATIN [Suspect]
     Indication: BREAST CANCER
     Dosage: DATE OF LAST DOSE PRIOR TO SAE: 11/FEB/2013
     Route: 065
     Dates: start: 20121210, end: 20130218
  3. DOXORUBICIN [Suspect]
     Indication: BREAST CANCER
     Dosage: DATE OF LAST DOSE PRIOR TO SAE: 11/FEB/2013
     Route: 065
     Dates: start: 20121210, end: 20130305
  4. PACLITAXEL [Suspect]
     Indication: BREAST CANCER
     Dosage: DATE OF LAST DOSE PRIOR TO SAE: 11/FEB/2013
     Route: 065
     Dates: start: 20121210, end: 20130305
  5. TANTUM VERDE (GERMANY) [Concomitant]
     Route: 065
     Dates: start: 20130121, end: 20130318
  6. AMPHO-MORONAL [Concomitant]
     Route: 065
     Dates: start: 20130128, end: 20130318
  7. XYLOCAIN [Concomitant]
     Route: 004
     Dates: start: 20130211, end: 20130315
  8. ECURAL FAT CREAM [Concomitant]
     Route: 065
     Dates: start: 20130121, end: 20130318
  9. RANITIDINE [Concomitant]
     Route: 065
     Dates: start: 20130114

REACTIONS (2)
  - Stomatitis [Recovered/Resolved]
  - Mucosal inflammation [Recovered/Resolved]
